FAERS Safety Report 10038926 (Version 2)
Quarter: 2014Q2

REPORT INFORMATION
  Report Type: Report from Study
  Country: MX (occurrence: MX)
  Receive Date: 20140326
  Receipt Date: 20140404
  Transmission Date: 20141212
  Serious: Yes (Death)
  Sender: FDA-Public Use
  Company Number: US-MERZ PHARMACEUTICALS, LLC DRUG SAFETY-14MRZ-00150

PATIENT
  Age: 79 Year
  Sex: Female

DRUGS (5)
  1. XEOMIN [Suspect]
     Indication: MUSCLE SPASTICITY
     Route: 030
     Dates: start: 20130215, end: 20130215
  2. XEOMIN [Suspect]
     Route: 030
     Dates: start: 20130516, end: 20130516
  3. XEOMIN [Suspect]
     Route: 030
     Dates: start: 20130821, end: 20130821
  4. XEOMIN [Suspect]
     Route: 030
     Dates: start: 20131121, end: 20131121
  5. SINEMET [Concomitant]
     Indication: VASCULAR PARKINSONISM
     Dosage: 250/25 MG (1 DOSAGE FORMS, 1 IN 1 DAY)
     Dates: start: 20101126

REACTIONS (1)
  - Pneumonia aspiration [None]
